FAERS Safety Report 19458872 (Version 1)
Quarter: 2021Q2

REPORT INFORMATION
  Report Type: Report from Study
  Country: US (occurrence: US)
  Receive Date: 20210624
  Receipt Date: 20210624
  Transmission Date: 20210717
  Serious: No
  Sender: FDA-Public Use
  Company Number: US-JNJFOC-20210637729

PATIENT
  Age: 61 Year
  Sex: Female
  Weight: 95.5 kg

DRUGS (5)
  1. TYVASO [Suspect]
     Active Substance: TREPROSTINIL
     Dosage: 36 G, QID, INHALATION
     Dates: start: 20210616
  2. SELEXIPAG [Suspect]
     Active Substance: SELEXIPAG
     Route: 048
  3. SELEXIPAG [Suspect]
     Active Substance: SELEXIPAG
     Indication: PULMONARY ARTERIAL HYPERTENSION
     Route: 048
  4. MACITENTAN [Suspect]
     Active Substance: MACITENTAN
     Indication: PULMONARY ARTERIAL HYPERTENSION
     Route: 048
  5. TYVASO [Suspect]
     Active Substance: TREPROSTINIL
     Indication: PULMONARY ARTERIAL HYPERTENSION
     Dosage: 18?54 G (3?9 BREATHS), FOUR TIMES A DAY (QID) VIA INHALATION (IH) ROUTE
     Dates: start: 202106

REACTIONS (2)
  - Fatigue [Recovered/Resolved]
  - Headache [Unknown]
